FAERS Safety Report 7472396-8 (Version None)
Quarter: 2011Q2

REPORT INFORMATION
  Report Type: 
  Country: None (occurrence: None)
  Receive Date: 20110511
  Receipt Date: 20110504
  Transmission Date: 20111010
  Serious: Yes (Other)
  Sender: FDA-Public Use
  Company Number: PHFR2011GB02916

PATIENT
  Sex: Female

DRUGS (1)
  1. TEGRETOL [Suspect]
     Indication: EPILEPSY
     Dosage: 3 DF, QD

REACTIONS (17)
  - SWOLLEN TONGUE [None]
  - LYMPHADENOPATHY [None]
  - VISION BLURRED [None]
  - MALAISE [None]
  - SWELLING FACE [None]
  - DYSPHAGIA [None]
  - NAUSEA [None]
  - CHEST PAIN [None]
  - ORAL PAIN [None]
  - SUICIDAL IDEATION [None]
  - DRUG HYPERSENSITIVITY [None]
  - LIP SWELLING [None]
  - MIDDLE EAR EFFUSION [None]
  - DEPRESSION [None]
  - DYSPNOEA [None]
  - EMOTIONAL DISTRESS [None]
  - ANXIETY [None]
